FAERS Safety Report 8538933-7 (Version None)
Quarter: 2012Q3

REPORT INFORMATION
  Report Type: 
  Country: None (occurrence: None)
  Receive Date: 20120726
  Receipt Date: 20120717
  Transmission Date: 20120928
  Serious: Yes (Hospitalization)
  Sender: FDA-Public Use
  Company Number: SE-JNJFOC-20120708371

PATIENT
  Sex: Female

DRUGS (11)
  1. ACETAMINOPHEN [Concomitant]
     Route: 065
  2. MORPHINE SULFATE [Concomitant]
     Dosage: 1MG/ML
     Route: 048
  3. MOLLIPECT [Concomitant]
     Dosage: 1MG/ML
     Route: 048
  4. DESOGESTREL AND ETHINYL ESTRADIOL [Concomitant]
     Dosage: 1MG/ML
     Route: 048
  5. METHOTREXATE SODIUM [Concomitant]
     Route: 065
  6. ARCOXIA [Concomitant]
     Route: 048
  7. KETOPROFEN [Concomitant]
     Dosage: 1MG/ML
     Route: 048
  8. REMICADE [Suspect]
     Indication: PSORIASIS
     Dosage: 200 MG CYCLICAL
     Route: 042
     Dates: start: 20110909, end: 20120322
  9. FOLIC ACID [Concomitant]
     Route: 065
  10. EMOVAT [Concomitant]
     Dosage: 1MG/ML
     Route: 065
  11. OMEPRAZOLE [Concomitant]
     Route: 065

REACTIONS (2)
  - CHRONIC HEPATITIS [None]
  - HEPATIC STEATOSIS [None]
